FAERS Safety Report 5730134-0 (Version None)
Quarter: 2008Q2

REPORT INFORMATION
  Report Type: 
  Country: None (occurrence: None)
  Receive Date: 20080507
  Receipt Date: 20080425
  Transmission Date: 20081010
  Serious: Yes (Hospitalization, Other)
  Sender: FDA-Public Use
  Company Number: US-ROCHE-494833

PATIENT
  Sex: Female

DRUGS (8)
  1. PEGASYS [Suspect]
     Indication: HEPATITIS C
     Route: 065
     Dates: start: 20061103, end: 20070801
  2. COPEGUS [Suspect]
     Indication: HEPATITIS C
     Route: 065
     Dates: start: 20061103, end: 20070801
  3. KLONOPIN [Suspect]
     Indication: DEPRESSION
     Route: 065
  4. WELLBUTRIN [Concomitant]
  5. INSULIN [Concomitant]
  6. OXYCODONE HCL [Concomitant]
  7. LISINOPRIL [Concomitant]
  8. NEURONTIN [Concomitant]

REACTIONS (20)
  - ANGER [None]
  - APPENDICECTOMY [None]
  - ASTHENIA [None]
  - CANDIDIASIS [None]
  - CHEST PAIN [None]
  - CONVULSION [None]
  - DEHYDRATION [None]
  - DEPRESSION [None]
  - DIABETES MELLITUS [None]
  - DYSGEUSIA [None]
  - EAR PAIN [None]
  - GROWTH OF EYELASHES [None]
  - HEPATIC ENZYME INCREASED [None]
  - HYPOAESTHESIA [None]
  - NEOPLASM MALIGNANT [None]
  - PARAESTHESIA [None]
  - SUICIDAL IDEATION [None]
  - UNDERWEIGHT [None]
  - VISION BLURRED [None]
  - WHITE BLOOD CELL COUNT DECREASED [None]
